FAERS Safety Report 26100402 (Version 2)
Quarter: 2025Q4

REPORT INFORMATION
  Report Type: Spontaneous
  Country: AU (occurrence: AU)
  Receive Date: 20251128
  Receipt Date: 20251211
  Transmission Date: 20260117
  Serious: Yes (Life-Threatening, Hospitalization, Other)
  Sender: ALKEM
  Company Number: AU-ALKEM LABORATORIES LIMITED-AU-ALKEM-2025-12756

PATIENT
  Age: 1 Day
  Sex: Female

DRUGS (1)
  1. LIDOCAINE [Suspect]
     Active Substance: LIDOCAINE
     Indication: Episiotomy
     Dosage: UNK
     Route: 064

REACTIONS (7)
  - Neonatal seizure [Recovered/Resolved]
  - Apnoea [Recovered/Resolved]
  - Hypotonia neonatal [Unknown]
  - Bradycardia neonatal [Unknown]
  - Electrocardiogram QT prolonged [Recovered/Resolved]
  - Local anaesthetic systemic toxicity [Recovered/Resolved]
  - Foetal exposure during delivery [Unknown]
